FAERS Safety Report 7673606-4 (Version None)
Quarter: 2011Q3

REPORT INFORMATION
  Report Type: 
  Country: None (occurrence: None)
  Receive Date: 20110810
  Receipt Date: 20110802
  Transmission Date: 20111222
  Serious: Yes (Hospitalization, Other)
  Sender: FDA-Public Use
  Company Number: US-BAYER-201031627NA

PATIENT
  Age: 17 Year
  Sex: Female
  Weight: 68 kg

DRUGS (5)
  1. YAZ [Suspect]
     Indication: CONTRACEPTION
     Dosage: UNK UNK, UNK
     Route: 048
     Dates: start: 20070701, end: 20090801
  2. LEXAPRO [Concomitant]
     Dosage: UNK
     Dates: start: 20070101, end: 20100101
  3. YAZ [Suspect]
     Indication: MENSTRUATION IRREGULAR
  4. ALBUTEROL SULFATE AUTOHALER [Concomitant]
     Dosage: UNK
     Dates: end: 20080101
  5. MEDICAL SHAKE [Concomitant]
     Dosage: UNK
     Dates: start: 20081101

REACTIONS (4)
  - CHOLECYSTITIS CHRONIC [None]
  - ABDOMINAL PAIN [None]
  - NAUSEA [None]
  - GALLBLADDER DISORDER [None]
